FAERS Safety Report 22199765 (Version 1)
Quarter: 2023Q2

REPORT INFORMATION
  Report Type: Spontaneous
  Country: CA (occurrence: CA)
  Receive Date: 20230412
  Receipt Date: 20230412
  Transmission Date: 20230722
  Serious: Yes (Other)
  Sender: FDA-Public Use
  Company Number: CA-DRL-USA/CAN/20/0127889

PATIENT
  Age: 62 Year
  Sex: Male

DRUGS (9)
  1. ATORVASTATIN CALCIUM [Suspect]
     Active Substance: ATORVASTATIN CALCIUM
     Indication: Product used for unknown indication
     Route: 048
  2. PANTOPRAZOLE [Suspect]
     Active Substance: PANTOPRAZOLE
     Indication: Product used for unknown indication
     Route: 048
  3. SANDOSTATIN LAR DEPOT [Suspect]
     Active Substance: OCTREOTIDE ACETATE
     Indication: Acromegaly
     Dosage: POWDER
     Route: 030
  4. TELMISARTAN [Suspect]
     Active Substance: TELMISARTAN
     Indication: Product used for unknown indication
     Route: 048
  5. VENLAFAXINE [Suspect]
     Active Substance: VENLAFAXINE HYDROCHLORIDE
     Indication: Product used for unknown indication
     Route: 048
  6. DIBUCAINE [Concomitant]
     Active Substance: DIBUCAINE
     Indication: Product used for unknown indication
     Route: 061
  7. ESCULIN [Concomitant]
     Active Substance: ESCULIN
     Indication: Product used for unknown indication
     Route: 061
  8. FRAMYCETIN [Concomitant]
     Active Substance: FRAMYCETIN
     Indication: Product used for unknown indication
     Route: 061
  9. METFORMIN [Concomitant]
     Active Substance: METFORMIN HYDROCHLORIDE
     Indication: Product used for unknown indication

REACTIONS (8)
  - Crohn^s disease [Unknown]
  - Diverticulitis [Unknown]
  - Blood pressure systolic increased [Unknown]
  - Blood pressure increased [Unknown]
  - Body temperature decreased [Unknown]
  - Back pain [Unknown]
  - Drug ineffective [Unknown]
  - Inappropriate schedule of product administration [Unknown]
